FAERS Safety Report 8268533-8 (Version None)
Quarter: 2012Q2

REPORT INFORMATION
  Report Type: 
  Country: None (occurrence: None)
  Receive Date: 20120409
  Receipt Date: 20111209
  Transmission Date: 20120825
  Serious: Yes (Other)
  Sender: FDA-Public Use
  Company Number: AU-GLAXOSMITHKLINE-B0770156A

PATIENT
  Sex: Female

DRUGS (2)
  1. TYKERB [Suspect]
     Indication: BREAST CANCER
     Route: 065
     Dates: start: 20110601
  2. XELODA [Suspect]
     Indication: BREAST CANCER
     Route: 065
     Dates: start: 20110601

REACTIONS (8)
  - BRAIN NEOPLASM [None]
  - PALMAR-PLANTAR ERYTHRODYSAESTHESIA SYNDROME [None]
  - LUNG NEOPLASM [None]
  - ERYTHEMA [None]
  - PAIN IN EXTREMITY [None]
  - DYSPHONIA [None]
  - HICCUPS [None]
  - ERUCTATION [None]
